FAERS Safety Report 17358857 (Version 1)
Quarter: 2020Q1

REPORT INFORMATION
  Report Type: Spontaneous
  Country: US (occurrence: US)
  Receive Date: 20200202
  Receipt Date: 20200202
  Transmission Date: 20200409
  Serious: No
  Sender: FDA-Public Use
  Company Number: US-TEVA-2020-US-1176653

PATIENT
  Sex: Female

DRUGS (1)
  1. ALPRAZOLAM ACTAVIS [Suspect]
     Active Substance: ALPRAZOLAM
     Indication: PANIC ATTACK

REACTIONS (2)
  - Drug ineffective [Unknown]
  - Drug screen negative [Unknown]
